FAERS Safety Report 9167519 (Version 1)
Quarter: 2013Q1

REPORT INFORMATION
  Report Type: Spontaneous
  Country: US (occurrence: None)
  Receive Date: 20130313
  Receipt Date: 20130313
  Transmission Date: 20140127
  Serious: Yes (Death)
  Sender: FDA-Public Use
  Company Number: None

PATIENT
  Age: 68 Year
  Sex: Female
  Weight: 63 kg

DRUGS (19)
  1. DOCETAXEL 10MG/ML HOSPIRA [Suspect]
     Route: 042
     Dates: start: 20130214
  2. CARBOPLATIN [Concomitant]
  3. HERCEPTIN [Concomitant]
  4. ALOXI [Concomitant]
  5. DECADRON [Concomitant]
  6. NAPROXEN [Concomitant]
  7. ST. JOHN^S WORT [Concomitant]
  8. ECHINACEA [Concomitant]
  9. MULTI VIT [Concomitant]
  10. OMEGA 3 KRILL OIL [Concomitant]
  11. VIT D 3 [Concomitant]
  12. VIT C [Concomitant]
  13. PHOSPHATIDYLSERINE [Concomitant]
  14. GREEN COFFEE EXTRACT [Concomitant]
  15. COMPAZINE [Concomitant]
  16. ATIVAN [Concomitant]
  17. LISINOPRIL [Concomitant]
  18. COREG [Concomitant]
  19. PLACEBO [Concomitant]

REACTIONS (12)
  - Abdominal discomfort [None]
  - Nausea [None]
  - Diarrhoea [None]
  - Vomiting [None]
  - Neutropenia [None]
  - Enterocolitis [None]
  - Septic shock [None]
  - Metabolic acidosis [None]
  - Encephalopathy [None]
  - Ischaemia [None]
  - Respiratory failure [None]
  - Renal failure acute [None]
